FAERS Safety Report 17785064 (Version 1)
Quarter: 2020Q2

REPORT INFORMATION
  Report Type: Spontaneous
  Country: US (occurrence: US)
  Receive Date: 20200514
  Receipt Date: 20200514
  Transmission Date: 20200714
  Serious: Yes (Hospitalization)
  Sender: FDA-Public Use
  Company Number: None

PATIENT
  Age: 75 Year
  Sex: Female
  Weight: 55 kg

DRUGS (4)
  1. BENDAMUSTINE HYDROCHLROIDE [Suspect]
     Active Substance: BENDAMUSTINE HYDROCHLORIDE
     Dates: end: 20150318
  2. VELCADE [Suspect]
     Active Substance: BORTEZOMIB
     Dates: end: 20150317
  3. LENALIDOMIDE (CC-5013) [Suspect]
     Active Substance: LENALIDOMIDE
     Dates: end: 20170314
  4. RITUXIMAB (MOAB C2B8 ANTI CD20, CHIMERIC) [Suspect]
     Active Substance: RITUXIMAB
     Dates: end: 20170125

REACTIONS (4)
  - Bowen^s disease [None]
  - Actinic keratosis [None]
  - Seborrhoeic keratosis [None]
  - Lichenoid keratosis [None]

NARRATIVE: CASE EVENT DATE: 20191126
